FAERS Safety Report 18831205 (Version 1)
Quarter: 2021Q1

REPORT INFORMATION
  Report Type: Spontaneous
  Country: US (occurrence: US)
  Receive Date: 20210203
  Receipt Date: 20210203
  Transmission Date: 20210419
  Serious: Yes (Hospitalization, Other)
  Sender: FDA-Public Use
  Company Number: US-ROCHE-2758025

PATIENT
  Age: 66 Year
  Sex: Female
  Weight: 48.12 kg

DRUGS (6)
  1. CALCIUM CITRATE WITH VITAMIN D [Concomitant]
     Active Substance: CALCIUM CITRATE\VITAMIN D
     Dosage: 100MG OF CALCIUM CITRATE AND 10MCG OR 400 IU OF VITAMIN D
     Route: 048
     Dates: end: 202011
  2. PREDNISONE. [Suspect]
     Active Substance: PREDNISONE
     Indication: PRODUCT USED FOR UNKNOWN INDICATION
     Dosage: 4 TABLETS FOR 4 DAYS , 3 TABLETS FOR 5 DAYS, 2 TABLETS FOR 6 DAYS 1.5 TABLETS FOR 8 DAYS, 1 TABLET F
     Route: 048
     Dates: start: 202012
  3. AVASTIN [Suspect]
     Active Substance: BEVACIZUMAB
     Indication: UVEAL MELANOMA
     Route: 065
     Dates: start: 201911
  4. MAGNESIUM CITRATE. [Concomitant]
     Active Substance: MAGNESIUM CITRATE
     Route: 048
     Dates: end: 202011
  5. VITAMIN B COMPLEX [Concomitant]
     Active Substance: CYANOCOBALAMIN\DEXPANTHENOL\NIACINAMIDE\PYRIDOXINE HYDROCHLORIDE\RIBOFLAVIN 5^-PHOSPHATE SODIUM\THIAMINE HYDROCHLORIDE\VITAMIN B COMPLEX
     Indication: FATIGUE
     Dosage: B1?50MCG, B2?50MCG AND B12?50MCG
     Route: 048
     Dates: start: 2018, end: 202011
  6. VASCEPA [Concomitant]
     Active Substance: ICOSAPENT ETHYL
     Route: 048
     Dates: end: 202011

REACTIONS (15)
  - Diplopia [Unknown]
  - Hypersensitivity vasculitis [Not Recovered/Not Resolved]
  - Eye pruritus [Unknown]
  - Dry eye [Unknown]
  - Pelvic pain [Unknown]
  - Syncope [Unknown]
  - Cervical vertebral fracture [Unknown]
  - Off label use [Unknown]
  - Mass [Not Recovered/Not Resolved]
  - Rash [Not Recovered/Not Resolved]
  - Skin disorder [Unknown]
  - Loss of consciousness [Unknown]
  - Intentional product use issue [Unknown]
  - Headache [Not Recovered/Not Resolved]
  - Hypoaesthesia [Unknown]

NARRATIVE: CASE EVENT DATE: 202002
